FAERS Safety Report 4745102-5 (Version None)
Quarter: 2005Q3

REPORT INFORMATION
  Report Type: 
  Country: None (occurrence: None)
  Receive Date: 20050812
  Receipt Date: 20050812
  Transmission Date: 20060218
  Serious: Yes (Life-Threatening, Hospitalization)
  Sender: FDA-Public Use
  Company Number: None

PATIENT
  Age: 70 Year
  Sex: Female
  Weight: 85.2762 kg

DRUGS (6)
  1. WARFARIN 5 MG [Suspect]
     Indication: AORTIC VALVE REPLACEMENT
     Dosage: 5 MG DAILY
     Dates: start: 20050404, end: 20050408
  2. WARFARIN 5 MG [Suspect]
     Indication: ATRIAL FIBRILLATION
     Dosage: 5 MG DAILY
     Dates: start: 20050404, end: 20050408
  3. CEFEPIME [Concomitant]
  4. METRONIDAZOLE [Concomitant]
  5. FLUCONAZOLE [Concomitant]
  6. PANTOPRAZOLE [Concomitant]

REACTIONS (2)
  - ABDOMINAL PAIN [None]
  - RETROPERITONEAL HAEMORRHAGE [None]
